FAERS Safety Report 4320323-4 (Version None)
Quarter: 2004Q1

REPORT INFORMATION
  Report Type: 
  Country: None (occurrence: None)
  Receive Date: 20040317
  Receipt Date: 20040305
  Transmission Date: 20041129
  Serious: Yes (Hospitalization)
  Sender: FDA-Public Use
  Company Number: PERI00204000637

PATIENT
  Age: 79 Year
  Sex: Female

DRUGS (7)
  1. COVERSYL (PERINDOPRIL) [Suspect]
     Indication: ESSENTIAL HYPERTENSION
     Dosage: 2 MG QD PO
     Route: 048
     Dates: end: 20030924
  2. ZOFRAN [Suspect]
     Indication: VOMITING
     Dosage: DAILY IV
     Route: 042
     Dates: start: 20030916, end: 20030918
  3. ACETAMINOPHEN [Suspect]
     Indication: ILL-DEFINED DISORDER
     Dosage: 4 G DAILY PO
     Route: 048
     Dates: start: 20030917, end: 20031019
  4. CEFAZOLIN [Suspect]
     Indication: PROPHYLAXIS
     Dosage: 1 G DAILY IV
     Route: 042
     Dates: start: 20030917, end: 20030917
  5. TRAMADOL HCL [Suspect]
     Indication: ILL-DEFINED DISORDER
     Dosage: 150 MG DAILY PO
     Route: 048
     Dates: start: 20030917, end: 20030901
  6. OPTIMOL (TIMOLOL MALEATE) [Concomitant]
  7. NEXIUM [Concomitant]

REACTIONS (2)
  - HYPONATRAEMIA [None]
  - INAPPROPRIATE ANTIDIURETIC HORMONE SECRETION [None]
